FAERS Safety Report 8852506 (Version 1)
Quarter: 2012Q4

REPORT INFORMATION
  Report Type: Report from Study
  Country: DE (occurrence: DE)
  Receive Date: 20121022
  Receipt Date: 20121022
  Transmission Date: 20130627
  Serious: Yes (Death, Hospitalization)
  Sender: FDA-Public Use
  Company Number: DE-BRISTOL-MYERS SQUIBB COMPANY-17019365

PATIENT
  Age: 71 Year
  Sex: Male

DRUGS (8)
  1. CETUXIMAB [Suspect]
     Indication: COLORECTAL CANCER METASTATIC
     Route: 042
     Dates: start: 20120905, end: 20120926
  2. IRINOTECAN [Suspect]
     Indication: COLORECTAL CANCER METASTATIC
     Dosage: Inf
     Route: 042
     Dates: start: 20120906, end: 20120920
  3. 5-FLUOROURACIL [Suspect]
     Indication: COLORECTAL CANCER METASTATIC
     Dosage: Inf
     Route: 042
     Dates: start: 20120906, end: 20120920
  4. FOLINIC ACID [Suspect]
     Indication: COLORECTAL CANCER METASTATIC
     Route: 042
     Dates: start: 20120906, end: 20120920
  5. SIMVASTATIN [Concomitant]
  6. FOSINOPRIL SODIUM [Concomitant]
  7. DOXYCYCLINE [Concomitant]
     Dates: start: 20120905
  8. TORASEMIDE [Concomitant]

REACTIONS (2)
  - Cardiac failure [Fatal]
  - Bronchopneumonia [Recovering/Resolving]
